FAERS Safety Report 6767072-0 (Version None)
Quarter: 2010Q2

REPORT INFORMATION
  Report Type: 
  Country: None (occurrence: None)
  Receive Date: 20100613
  Receipt Date: 20100531
  Transmission Date: 20101027
  Serious: Yes (Life-Threatening, Other)
  Sender: FDA-Public Use
  Company Number: CA-MYLANLABS-2009S1016105

PATIENT
  Age: 61 Year
  Sex: Female
  Weight: 67.13 kg

DRUGS (7)
  1. NIFEDIPINE [Suspect]
     Indication: BLOOD PRESSURE INCREASED
     Dosage: 60MG
     Route: 048
     Dates: start: 20090606, end: 20090819
  2. APO-INDAPAMIDE [Concomitant]
  3. ACCUPRIL [Concomitant]
  4. APO-ATENOLOL [Concomitant]
  5. DETROL LA [Concomitant]
  6. THYROID TAB [Concomitant]
  7. ROCALTROL [Concomitant]

REACTIONS (4)
  - DIZZINESS [None]
  - DYSPNOEA [None]
  - HEART RATE IRREGULAR [None]
  - PALPITATIONS [None]
